FAERS Safety Report 7440354-5 (Version None)
Quarter: 2011Q2

REPORT INFORMATION
  Report Type: 
  Country: None (occurrence: None)
  Receive Date: 20110427
  Receipt Date: 20110421
  Transmission Date: 20111010
  Serious: Yes (Hospitalization, Disabling, Other)
  Sender: FDA-Public Use
  Company Number: US-MERCK-0911USA02013

PATIENT
  Age: 57 Year
  Sex: Female
  Weight: 84 kg

DRUGS (6)
  1. FOSAMAX PLUS D [Suspect]
     Route: 048
  2. ALENDRONATE SODIUM [Suspect]
     Route: 048
     Dates: start: 20071203, end: 20090311
  3. FOSAMAX [Suspect]
     Route: 048
     Dates: start: 20080101, end: 20090311
  4. HORMONES (UNSPECIFIED) [Concomitant]
     Route: 065
     Dates: start: 19900101, end: 20000101
  5. FOSAMAX [Suspect]
     Indication: OSTEOPOROSIS PROPHYLAXIS
     Route: 048
     Dates: start: 20000101, end: 20010331
  6. FOSAMAX [Suspect]
     Route: 048
     Dates: start: 20010321, end: 20071203

REACTIONS (37)
  - SPINAL COLUMN STENOSIS [None]
  - RETINAL TEAR [None]
  - RENAL CYST [None]
  - SPINAL OSTEOARTHRITIS [None]
  - CHEST PAIN [None]
  - CEREBROVASCULAR ACCIDENT [None]
  - CONTUSION [None]
  - GASTROINTESTINAL DISORDER [None]
  - HYPERTENSION [None]
  - TOOTH FRACTURE [None]
  - GLUCOSE TOLERANCE IMPAIRED [None]
  - OSTEOARTHRITIS [None]
  - INTERVERTEBRAL DISC PROTRUSION [None]
  - DIABETES MELLITUS [None]
  - BACK PAIN [None]
  - CORONARY ARTERY DISEASE [None]
  - GALLBLADDER DISORDER [None]
  - ANXIETY [None]
  - LOW TURNOVER OSTEOPATHY [None]
  - HYPERLIPIDAEMIA [None]
  - TRANSIENT ISCHAEMIC ATTACK [None]
  - DEPRESSION [None]
  - FEMUR FRACTURE [None]
  - SENSORY DISTURBANCE [None]
  - BLOOD CHOLESTEROL INCREASED [None]
  - LUMBAR SPINAL STENOSIS [None]
  - INTERVERTEBRAL DISC DEGENERATION [None]
  - INTERVERTEBRAL DISC SPACE NARROWING [None]
  - ABDOMINAL DISCOMFORT [None]
  - PAIN IN EXTREMITY [None]
  - OSTEOPOROSIS [None]
  - OSTEOCHONDROMA [None]
  - BONE PAIN [None]
  - GLAUCOMA [None]
  - VERTIGO [None]
  - SALIVARY HYPERSECRETION [None]
  - RETINAL DISORDER [None]
